FAERS Safety Report 4569266-1 (Version None)
Quarter: 2005Q1

REPORT INFORMATION
  Report Type: 
  Country: None (occurrence: None)
  Receive Date: 20050203
  Receipt Date: 20050119
  Transmission Date: 20050727
  Serious: Yes (Hospitalization, Other)
  Sender: FDA-Public Use
  Company Number: US-GLAXOSMITHKLINE-A0541251A

PATIENT
  Age: 46 Year
  Sex: Female
  Weight: 71 kg

DRUGS (1)
  1. CITRUCEL REGULAR SUSPENSION [Suspect]
     Indication: CHANGE OF BOWEL HABIT
     Route: 048
     Dates: start: 20031201

REACTIONS (7)
  - CARPAL TUNNEL SYNDROME [None]
  - COAGULOPATHY [None]
  - GASTROOESOPHAGEAL REFLUX DISEASE [None]
  - HERNIA [None]
  - OVARIAN CANCER [None]
  - THROMBOSIS [None]
  - ULCER [None]
